FAERS Safety Report 9364085 (Version 2)
Quarter: 2019Q2

REPORT INFORMATION
  Report Type: Spontaneous
  Country: US (occurrence: US)
  Receive Date: 20130624
  Receipt Date: 20190402
  Transmission Date: 20190711
  Serious: Yes (Other)
  Sender: FDA-Public Use
  Company Number: US-TEVA-413474USA

PATIENT
  Age: 56 Year
  Sex: Female

DRUGS (5)
  1. COPAXONE [Concomitant]
     Active Substance: GLATIRAMER ACETATE
     Indication: MULTIPLE SCLEROSIS
     Dates: start: 19970505, end: 20060607
  2. COPAXONE [Concomitant]
     Active Substance: GLATIRAMER ACETATE
     Route: 058
     Dates: start: 20140414
  3. BACLOFEN. [Suspect]
     Active Substance: BACLOFEN
     Route: 037
  4. COPAXONE [Concomitant]
     Active Substance: GLATIRAMER ACETATE
     Dates: start: 19970615, end: 20140414
  5. AMPYRA [Suspect]
     Active Substance: DALFAMPRIDINE
     Dates: start: 2003, end: 201105

REACTIONS (8)
  - Loss of personal independence in daily activities [Unknown]
  - Gait disturbance [Not Recovered/Not Resolved]
  - Gait disturbance [Not Recovered/Not Resolved]
  - Fall [Unknown]
  - Subdural haematoma [Unknown]
  - Bladder disorder [Unknown]
  - Asthenia [Unknown]
  - Muscle spasms [Not Recovered/Not Resolved]

NARRATIVE: CASE EVENT DATE: 201105
